FAERS Safety Report 6055147-3 (Version None)
Quarter: 2009Q1

REPORT INFORMATION
  Report Type: 
  Country: None (occurrence: None)
  Receive Date: 20090122
  Receipt Date: 20090108
  Transmission Date: 20090719
  Serious: Yes (Death)
  Sender: FDA-Public Use
  Company Number: 039937

PATIENT
  Age: 52 Year
  Sex: Male

DRUGS (8)
  1. VERAPAMIL [Suspect]
  2. METFORMIN HYDROCHLORIDE [Suspect]
  3. GLIPIZIDE [Suspect]
  4. LITHIUM CARBONATE(LITHIUM CARBONATE) EXTENDED RELEASE [Suspect]
  5. OLANZAPINE [Suspect]
  6. DYAZIDE [Suspect]
  7. MEVACOR [Suspect]
  8. HYDROGEN PEROXIDE SOLUTION [Suspect]

REACTIONS (2)
  - COMPLETED SUICIDE [None]
  - DRUG TOXICITY [None]
